FAERS Safety Report 18209248 (Version 2)
Quarter: 2021Q3

REPORT INFORMATION
  Report Type: Spontaneous
  Country: CA (occurrence: CA)
  Receive Date: 20200828
  Receipt Date: 20210729
  Transmission Date: 20211014
  Serious: Yes (Death)
  Sender: FDA-Public Use
  Company Number: CA-ASTRAZENECA-2020SF09130

PATIENT
  Age: 71 Year
  Sex: Male

DRUGS (16)
  1. BUPROPION SR [Suspect]
     Active Substance: BUPROPION HYDROCHLORIDE
     Indication: SCHIZOPHRENIA
     Dosage: 150 MG AND 300 MG TABLET ER
     Route: 048
  2. ATORVASTATIN [Concomitant]
     Active Substance: ATORVASTATIN
  3. POTASSIUM CHLORIDE. [Concomitant]
     Active Substance: POTASSIUM CHLORIDE
  4. QUETIAPINE XR [Concomitant]
     Active Substance: QUETIAPINE
  5. DUTASTERIDE. [Concomitant]
     Active Substance: DUTASTERIDE
  6. METFORMIN [Concomitant]
     Active Substance: METFORMIN HYDROCHLORIDE
  7. RABEPRAZOLE [Concomitant]
     Active Substance: RABEPRAZOLE
  8. TAMSULOSIN [Concomitant]
     Active Substance: TAMSULOSIN
  9. FERAMAX [Concomitant]
     Active Substance: IRON\POLYSACCHARIDES
  10. ZOPICLONE [Concomitant]
     Active Substance: ZOPICLONE
  11. FUROSEMIDE. [Concomitant]
     Active Substance: FUROSEMIDE
  12. VITAMIN B12 [Concomitant]
     Active Substance: CYANOCOBALAMIN
  13. QUETIAPINE FUMARATE XR [Suspect]
     Active Substance: QUETIAPINE FUMARATE
     Indication: SCHIZOPHRENIA
     Dosage: 300.0MG UNKNOWN
     Route: 048
  14. ARIPIPRAZOLE. [Suspect]
     Active Substance: ARIPIPRAZOLE
     Indication: SCHIZOPHRENIA
     Route: 048
  15. ESCITALOPRAM [Suspect]
     Active Substance: ESCITALOPRAM OXALATE
     Indication: SCHIZOPHRENIA
     Route: 048
  16. IPRATROPIUM [Concomitant]
     Active Substance: IPRATROPIUM
     Dosage: 2 PUFFS FOUR TIMES A DAY

REACTIONS (13)
  - Blood creatine phosphokinase increased [Fatal]
  - Cardiogenic shock [Fatal]
  - Cardiomyopathy [Fatal]
  - Hepatic function abnormal [Fatal]
  - Tachycardia [Fatal]
  - Myoclonus [Fatal]
  - Hyperthermia [Fatal]
  - Neuroleptic malignant syndrome [Fatal]
  - Cardiac failure [Fatal]
  - Renal impairment [Fatal]
  - Autonomic nervous system imbalance [Fatal]
  - Hyperreflexia [Fatal]
  - Muscle rigidity [Fatal]

NARRATIVE: CASE EVENT DATE: 2020
